FAERS Safety Report 7041260-0 (Version None)
Quarter: 2010Q4

REPORT INFORMATION
  Report Type: 
  Country: None (occurrence: None)
  Receive Date: 20101013
  Receipt Date: 20100930
  Transmission Date: 20110411
  Serious: Yes (Hospitalization)
  Sender: FDA-Public Use
  Company Number: PHFR2010GB01537

PATIENT
  Sex: Female

DRUGS (6)
  1. CLOZARIL [Suspect]
     Indication: SCHIZOPHRENIA
     Dosage: 150 + 250 MG
     Dates: start: 20091002
  2. CITALOPRAM HYDROBROMIDE [Suspect]
     Indication: DEPRESSION
     Dosage: 20 MG, QD
     Route: 048
     Dates: end: 20100722
  3. SIMVASTATIN [Concomitant]
     Dosage: 60 MG, UNK
     Route: 048
  4. ISMO [Concomitant]
     Dosage: 30 MG, BID
     Route: 048
  5. STEMETIL [Concomitant]
  6. ZOPICLONE [Concomitant]

REACTIONS (4)
  - DIZZINESS [None]
  - FALL [None]
  - LOSS OF CONSCIOUSNESS [None]
  - OESOPHAGITIS [None]
